FAERS Safety Report 8958174 (Version 1)
Quarter: 2012Q4

REPORT INFORMATION
  Report Type: 
  Country: FR (occurrence: FR)
  Receive Date: 20121211
  Receipt Date: 20121211
  Transmission Date: 20130627
  Serious: Yes (Death, Other)
  Sender: FDA-Public Use
  Company Number: FR-MERCK-1212FRA000875

PATIENT
  Sex: Male

DRUGS (3)
  1. VICTRELIS [Suspect]
     Indication: HEPATITIS C
     Route: 048
  2. VIRAFERONPEG [Suspect]
     Indication: HEPATITIS C
     Route: 058
  3. REBETOL [Suspect]
     Indication: HEPATITIS C
     Route: 048

REACTIONS (2)
  - Suicide attempt [Fatal]
  - Coma [Fatal]
